FAERS Safety Report 4530869-1 (Version None)
Quarter: 2004Q4

REPORT INFORMATION
  Report Type: 
  Country: None (occurrence: None)
  Receive Date: 20041215
  Receipt Date: 20041209
  Transmission Date: 20050328
  Serious: Yes (Death)
  Sender: FDA-Public Use
  Company Number: 2004UW25127

PATIENT
  Sex: Male

DRUGS (1)
  1. NEXIUM [Suspect]

REACTIONS (1)
  - OESOPHAGEAL CARCINOMA [None]
